FAERS Safety Report 12890211 (Version 1)
Quarter: 2016Q4

REPORT INFORMATION
  Report Type: Spontaneous
  Country: CN (occurrence: CN)
  Receive Date: 20161027
  Receipt Date: 20161027
  Transmission Date: 20170207
  Serious: Yes (Hospitalization, Other)
  Sender: FDA-Public Use
  Company Number: CN-GILEAD-2016-0239437

PATIENT
  Age: 27 Year
  Sex: Male

DRUGS (6)
  1. THYMOPENTIN [Concomitant]
     Active Substance: THYMOPENTIN
  2. HEPSERA [Suspect]
     Active Substance: ADEFOVIR DIPIVOXIL
     Indication: HEPATITIS VIRAL
     Dosage: 1 DF, QD
     Route: 048
     Dates: start: 20160427, end: 20160430
  3. SEBIVO [Suspect]
     Active Substance: TELBIVUDINE
     Indication: HEPATITIS VIRAL
     Dosage: 1 DF, QD
     Route: 048
     Dates: start: 20150701, end: 20160509
  4. ALL OTHER NON-THERAPEUTIC PRODUCTS [Concomitant]
     Active Substance: UNSPECIFIED INGREDIENT
  5. ENTECAVIR. [Suspect]
     Active Substance: ENTECAVIR
     Indication: HEPATITIS VIRAL
     Route: 065
  6. ORNITHINE ASPARTATE [Concomitant]
     Active Substance: ORNITHINE ASPARTATE

REACTIONS (7)
  - Hypoaesthesia [Recovering/Resolving]
  - Pain in extremity [Recovering/Resolving]
  - Muscular weakness [Recovering/Resolving]
  - Asthma [Unknown]
  - Blood lactic acid increased [Unknown]
  - Tachypnoea [Unknown]
  - Abasia [Unknown]

NARRATIVE: CASE EVENT DATE: 2016
